FAERS Safety Report 14263413 (Version 1)
Quarter: 2017Q4

REPORT INFORMATION
  Report Type: Report from Study
  Country: US (occurrence: US)
  Receive Date: 20171208
  Receipt Date: 20171208
  Transmission Date: 20180321
  Serious: Yes (Hospitalization, Other)
  Sender: FDA-Public Use
  Company Number: US-AMGEN-USACT2017180076

PATIENT
  Age: 32 Year
  Sex: Male
  Weight: 75.6 kg

DRUGS (1)
  1. ROMIPLOSTIM [Suspect]
     Active Substance: ROMIPLOSTIM
     Indication: THROMBOCYTOPENIA
     Dosage: 200 MUG, QWK
     Route: 058
     Dates: start: 20150120

REACTIONS (3)
  - Pulmonary embolism [Unknown]
  - Oedema peripheral [Unknown]
  - Subclavian vein thrombosis [Unknown]
